FAERS Safety Report 7998400-6 (Version None)
Quarter: 2011Q4

REPORT INFORMATION
  Report Type: 
  Country: None (occurrence: None)
  Receive Date: 20111221
  Receipt Date: 20110922
  Transmission Date: 20120403
  Serious: No
  Sender: FDA-Public Use
  Company Number: US-GLAXOSMITHKLINE-A0945630A

PATIENT
  Age: 53 Year
  Sex: Female

DRUGS (4)
  1. LOVAZA [Suspect]
     Indication: DYSPEPSIA
     Dosage: 4CAP PER DAY
     Route: 048
     Dates: start: 20110915
  2. YOGURT [Concomitant]
  3. LOVAZA [Concomitant]
  4. METFORMIN HCL [Concomitant]

REACTIONS (5)
  - MEDICATION RESIDUE [None]
  - ABDOMINAL PAIN UPPER [None]
  - DYSPEPSIA [None]
  - ABNORMAL FAECES [None]
  - CONSTIPATION [None]
